FAERS Safety Report 18962368 (Version 3)
Quarter: 2021Q1

REPORT INFORMATION
  Report Type: Report from Study
  Country: US (occurrence: US)
  Receive Date: 20210303
  Receipt Date: 20210318
  Transmission Date: 20210420
  Serious: Yes (Hospitalization, Other)
  Sender: FDA-Public Use
  Company Number: US-GILEAD-2021-0517157

PATIENT
  Age: 78 Year
  Sex: Female

DRUGS (25)
  1. ADCIRCA [Concomitant]
     Active Substance: TADALAFIL
  2. METOLAZONE. [Concomitant]
     Active Substance: METOLAZONE
  3. PILOCARPINE. [Concomitant]
     Active Substance: PILOCARPINE
  4. VESICARE [Concomitant]
     Active Substance: SOLIFENACIN SUCCINATE
  5. RESTASIS [Concomitant]
     Active Substance: CYCLOSPORINE
  6. PRAVASTATIN. [Concomitant]
     Active Substance: PRAVASTATIN
  7. PROBIOTICS NOS [Concomitant]
     Active Substance: PROBIOTICS NOS
  8. DIGOXIN. [Concomitant]
     Active Substance: DIGOXIN
  9. BACLOFEN. [Concomitant]
     Active Substance: BACLOFEN
  10. PROTONIX [OMEPRAZOLE] [Concomitant]
     Active Substance: OMEPRAZOLE
  11. LEVOTHYROXINE. [Concomitant]
     Active Substance: LEVOTHYROXINE
  12. AZELASTINE. [Concomitant]
     Active Substance: AZELASTINE HYDROCHLORIDE
  13. FUROSEMIDE. [Concomitant]
     Active Substance: FUROSEMIDE
  14. TURMERIC [CURCUMA LONGA] [Concomitant]
     Active Substance: HERBALS\TURMERIC
  15. PREDNISONE. [Concomitant]
     Active Substance: PREDNISONE
  16. POTASSIUM CHLORIDE. [Concomitant]
     Active Substance: POTASSIUM CHLORIDE
  17. PLAQUENIL S [Concomitant]
     Active Substance: HYDROXYCHLOROQUINE SULFATE
  18. AUGMENTINE [AMOXICILLIN;CLAVULANIC ACID] [Concomitant]
     Active Substance: AMOXICILLIN\CLAVULANIC ACID
  19. AMBRISENTAN [Suspect]
     Active Substance: AMBRISENTAN
     Indication: PULMONARY ARTERIAL HYPERTENSION
     Dosage: 10 MG, QD
     Route: 065
  20. ELIQUIS [Concomitant]
     Active Substance: APIXABAN
  21. SOTALOL. [Concomitant]
     Active Substance: SOTALOL
  22. SPIRONOLACTONE. [Concomitant]
     Active Substance: SPIRONOLACTONE
  23. MAGNESIUM [Concomitant]
     Active Substance: MAGNESIUM
  24. LATANOPROST. [Concomitant]
     Active Substance: LATANOPROST
  25. IPRATROPIUM BROMIDE. [Concomitant]
     Active Substance: IPRATROPIUM BROMIDE

REACTIONS (5)
  - Thinking abnormal [Not Recovered/Not Resolved]
  - Red blood cell count decreased [Not Recovered/Not Resolved]
  - Communication disorder [Not Recovered/Not Resolved]
  - SARS-CoV-2 test positive [Recovered/Resolved]
  - Sinusitis [Not Recovered/Not Resolved]
